FAERS Safety Report 14991585 (Version 1)
Quarter: 2018Q2

REPORT INFORMATION
  Report Type: Spontaneous
  Country: ES (occurrence: ES)
  Receive Date: 20180608
  Receipt Date: 20180608
  Transmission Date: 20180711
  Serious: Yes (Other)
  Sender: FDA-Public Use
  Company Number: ES-MYLANLABS-2018M1038122

PATIENT
  Age: 70 Year
  Sex: Female

DRUGS (1)
  1. ERLOTINIB [Suspect]
     Active Substance: ERLOTINIB
     Indication: LUNG ADENOCARCINOMA STAGE IV
     Dosage: UNK
     Route: 065

REACTIONS (3)
  - Skin fissures [Recovered/Resolved]
  - Pyogenic granuloma [Recovered/Resolved]
  - Pancreatitis acute [Recovered/Resolved]
